FAERS Safety Report 15336179 (Version 2)
Quarter: 2019Q2

REPORT INFORMATION
  Report Type: Spontaneous
  Country: CA (occurrence: CA)
  Receive Date: 20180830
  Receipt Date: 20190626
  Transmission Date: 20190711
  Serious: Yes (Hospitalization)
  Sender: FDA-Public Use
  Company Number: CA-TEVA-2018-CA-948052

PATIENT
  Age: 35 Year
  Sex: Female
  Weight: 131 kg

DRUGS (18)
  1. APO-VALPROIC [Suspect]
     Active Substance: VALPROIC ACID
     Indication: EPILEPSY
     Route: 048
  2. ALLOPURINOL. [Concomitant]
     Active Substance: ALLOPURINOL
  3. ASA [Concomitant]
     Active Substance: ASPIRIN
  4. KEPPRA [Concomitant]
     Active Substance: LEVETIRACETAM
  5. NOVO-VALPROIC [Suspect]
     Active Substance: VALPROIC ACID
  6. DEPAKENE [Concomitant]
     Active Substance: VALPROIC ACID
  7. HUMULIN 70/30 [Concomitant]
     Active Substance: INSULIN HUMAN
  8. NOVORAPID [Concomitant]
     Active Substance: INSULIN ASPART
     Route: 058
  9. DDAVP [Concomitant]
     Active Substance: DESMOPRESSIN ACETATE
  10. EZETROL [Concomitant]
     Active Substance: EZETIMIBE
  11. FUROSEMIDE. [Concomitant]
     Active Substance: FUROSEMIDE
  12. LEVEMIR [Concomitant]
     Active Substance: INSULIN DETEMIR
     Route: 058
  13. FOLIC ACID. [Concomitant]
     Active Substance: FOLIC ACID
  14. SODIUM VALPROATE [Concomitant]
     Active Substance: VALPROATE SODIUM
  15. L-THYROXINE [Concomitant]
     Active Substance: LEVOTHYROXINE
  16. ALTACE [Concomitant]
     Active Substance: RAMIPRIL
  17. HUMULIN R [Concomitant]
     Active Substance: INSULIN HUMAN
     Route: 065
  18. HYDROCORTISONE. [Concomitant]
     Active Substance: HYDROCORTISONE
     Route: 030

REACTIONS (2)
  - Drug ineffective [Recovered/Resolved]
  - Product substitution issue [Recovered/Resolved]
